FAERS Safety Report 12608006 (Version 1)
Quarter: 2016Q3

REPORT INFORMATION
  Report Type: Report from Study
  Country: CA (occurrence: CA)
  Receive Date: 20160729
  Receipt Date: 20160729
  Transmission Date: 20161109
  Serious: Yes (Hospitalization)
  Sender: FDA-Public Use
  Company Number: PHHO2013CA016110

PATIENT
  Age: 65 Year
  Sex: Female
  Weight: 68.3 kg

DRUGS (10)
  1. MICARDIS PLUS [Concomitant]
     Active Substance: HYDROCHLOROTHIAZIDE\TELMISARTAN
     Indication: HYPERTENSION
     Dosage: 80 / 12.5 MG, QD
     Route: 048
  2. ACETAMINOPHEN. [Concomitant]
     Active Substance: ACETAMINOPHEN
     Indication: PAIN IN EXTREMITY
     Dosage: 1000 MG, PRN
     Route: 048
     Dates: start: 20130517
  3. EVEROLIMUS [Suspect]
     Active Substance: EVEROLIMUS
     Indication: DIFFUSE LARGE B-CELL LYMPHOMA
     Dosage: 5 MG, BID
     Route: 048
     Dates: start: 20130422, end: 20130517
  4. CALCIUM + VIT D [Concomitant]
     Active Substance: CALCIUM\VITAMIN D
     Indication: OSTEOPOROSIS PROPHYLAXIS
     Dosage: 600 MG / 400 IU QD
     Route: 065
  5. CORTISONE [Concomitant]
     Active Substance: CORTISONE\HYDROCORTISONE
     Indication: PAIN IN EXTREMITY
     Dosage: UNK
     Route: 065
     Dates: start: 20131002
  6. EMPRACET [Concomitant]
     Indication: PAIN IN EXTREMITY
     Dosage: 30 MG, Q 4 HRS
     Route: 048
     Dates: start: 20131206
  7. ATIVAN [Concomitant]
     Active Substance: LORAZEPAM
     Indication: INSOMNIA
     Dosage: 1 MG, HS PRN
     Route: 048
     Dates: start: 201211
  8. STATEX [Concomitant]
     Active Substance: MORPHINE SULFATE
     Indication: PAIN IN EXTREMITY
     Dosage: 5 MG, TID
     Route: 048
     Dates: start: 20131206
  9. EVEROLIMUS [Suspect]
     Active Substance: EVEROLIMUS
     Dosage: 5 MG, QD
     Route: 048
     Dates: start: 20130606, end: 20130805
  10. EVEROLIMUS [Suspect]
     Active Substance: EVEROLIMUS
     Dosage: 5 MG, QOD
     Route: 048
     Dates: end: 20131213

REACTIONS (1)
  - Polyarthritis [Recovered/Resolved with Sequelae]

NARRATIVE: CASE EVENT DATE: 20131205
